FAERS Safety Report 4274529-3 (Version None)
Quarter: 2004Q1

REPORT INFORMATION
  Report Type: 
  Country: None (occurrence: None)
  Receive Date: 20040120
  Receipt Date: 20031120
  Transmission Date: 20041129
  Serious: Yes (Life-Threatening)
  Sender: FDA-Public Use
  Company Number: US-ROCHE-352402

PATIENT
  Age: 58 Year
  Sex: Male
  Weight: 83 kg

DRUGS (2)
  1. PEGASYS [Suspect]
     Indication: HEPATITIS C
     Dosage: REGIMEN REPORTED AS WEEKLY.
     Route: 058
     Dates: start: 20030912
  2. COPEGUS [Suspect]
     Indication: HEPATITIS C
     Dosage: REGIMEN REPORTED AS ONCE DAILY.
     Route: 048
     Dates: start: 20030912

REACTIONS (2)
  - DEEP VEIN THROMBOSIS [None]
  - PULMONARY EMBOLISM [None]
